FAERS Safety Report 6990329-5 (Version None)
Quarter: 2010Q3

REPORT INFORMATION
  Report Type: 
  Country: None (occurrence: None)
  Receive Date: 20100916
  Receipt Date: 20100610
  Transmission Date: 20110219
  Serious: Yes (Other)
  Sender: FDA-Public Use
  Company Number: GB-PFIZER INC-2010064521

PATIENT
  Sex: Female

DRUGS (6)
  1. LYRICA [Suspect]
     Indication: GENERALISED ANXIETY DISORDER
     Dosage: 50 MG, 2X/DAY
     Route: 048
     Dates: start: 20091013
  2. LYRICA [Suspect]
     Indication: CONVULSION
  3. CLOBAZAM [Concomitant]
     Indication: EPILEPSY
     Dosage: 10 MG, 2X/DAY
     Route: 048
  4. CARBAMAZEPINE [Concomitant]
     Indication: EPILEPSY
     Dosage: 600 MG, 2X/DAY
     Route: 048
  5. DIAZEPAM [Concomitant]
  6. PAROXETINE [Concomitant]
     Indication: ANXIETY DISORDER
     Dosage: 300 MG, 1X/DAY
     Route: 048

REACTIONS (5)
  - DYSARTHRIA [None]
  - DYSPHAGIA [None]
  - INAPPROPRIATE SCHEDULE OF DRUG ADMINISTRATION [None]
  - MUSCLE TIGHTNESS [None]
  - THROAT TIGHTNESS [None]
